FAERS Safety Report 21476323 (Version 1)
Quarter: 2022Q4

REPORT INFORMATION
  Report Type: Spontaneous
  Country: US (occurrence: US)
  Receive Date: 20221019
  Receipt Date: 20221019
  Transmission Date: 20230113
  Serious: Yes (Hospitalization, Other)
  Sender: FDA-Public Use
  Company Number: US-LUPIN PHARMACEUTICALS INC.-2022-12230

PATIENT
  Age: 60 Year
  Sex: Female

DRUGS (1)
  1. HYDROXYCHLOROQUINE SULFATE [Suspect]
     Active Substance: HYDROXYCHLOROQUINE SULFATE
     Indication: Product used for unknown indication
     Dosage: 200 MG (INGESTED 10-15 TABLETS)
     Route: 048

REACTIONS (5)
  - Overdose [Unknown]
  - Suicide attempt [Unknown]
  - Mental status changes [Recovering/Resolving]
  - Electrocardiogram QT prolonged [Recovered/Resolved]
  - Hypokalaemia [Recovering/Resolving]
